FAERS Safety Report 10206002 (Version 2)
Quarter: 2014Q2

REPORT INFORMATION
  Report Type: Spontaneous
  Country: US (occurrence: US)
  Receive Date: 20140530
  Receipt Date: 20140530
  Transmission Date: 20141212
  Serious: Yes (Other)
  Sender: FDA-Public Use
  Company Number: US-AMGEN-USASP2014032814

PATIENT
  Age: 62 Year
  Sex: Female

DRUGS (1)
  1. ENBREL [Suspect]
     Indication: RHEUMATOID ARTHRITIS
     Dosage: 50 MG, QWK
     Route: 065
     Dates: start: 20031201

REACTIONS (18)
  - Panic attack [Recovered/Resolved]
  - Chronic obstructive pulmonary disease [Unknown]
  - Hypertension [Unknown]
  - Visual impairment [Not Recovered/Not Resolved]
  - Cataract [Not Recovered/Not Resolved]
  - Apnoea [Unknown]
  - Cystitis escherichia [Recovered/Resolved]
  - Urinary tract infection [Unknown]
  - Wheezing [Recovered/Resolved]
  - Decreased appetite [Recovered/Resolved]
  - Dyspnoea [Recovered/Resolved]
  - Insomnia [Unknown]
  - Hand deformity [Not Recovered/Not Resolved]
  - Pain in extremity [Unknown]
  - Pyrexia [Recovered/Resolved]
  - Mobility decreased [Recovered/Resolved]
  - Drug effect decreased [Not Recovered/Not Resolved]
  - Periarthritis [Not Recovered/Not Resolved]
